FAERS Safety Report 6018648-X (Version None)
Quarter: 2008Q4

REPORT INFORMATION
  Report Type: 
  Country: None (occurrence: None)
  Receive Date: 20081223
  Receipt Date: 20081209
  Transmission Date: 20090506
  Serious: Yes (Death)
  Sender: FDA-Public Use
  Company Number: US-GENENTECH-274162

PATIENT
  Sex: Male

DRUGS (7)
  1. BEVACIZUMAB [Suspect]
     Indication: COLON CANCER RECURRENT
     Dosage: 5 MG/KG, QD
     Route: 041
     Dates: start: 20071003, end: 20080730
  2. IRINOTECAN HCL [Suspect]
     Indication: COLON CANCER RECURRENT
     Dosage: 100 MG/M2, QD
     Route: 041
     Dates: start: 20071003
  3. FLUOROURACIL [Suspect]
     Indication: COLON CANCER RECURRENT
     Dosage: 500 MG/M2, QD
     Route: 042
     Dates: start: 20071003
  4. LEUCOVORIN CALCIUM [Suspect]
     Indication: COLON CANCER RECURRENT
     Dosage: 250 MG/M2, QD
     Route: 041
     Dates: start: 20071003
  5. BROTIZOLAM [Concomitant]
     Indication: DRUG USE FOR UNKNOWN INDICATION
     Dosage: UNK
     Dates: start: 20071003, end: 20080604
  6. KYTRIL [Concomitant]
     Indication: DRUG USE FOR UNKNOWN INDICATION
     Dosage: UNK
     Dates: start: 20071003, end: 20080604
  7. DECADRON [Concomitant]
     Indication: DRUG USE FOR UNKNOWN INDICATION
     Dosage: UNK
     Dates: start: 20071003, end: 20080604

REACTIONS (2)
  - NEUTROPHIL COUNT DECREASED [None]
  - SUDDEN DEATH [None]
